FAERS Safety Report 10062723 (Version 1)
Quarter: 2014Q2

REPORT INFORMATION
  Report Type: Spontaneous
  Country: BR (occurrence: BR)
  Receive Date: 20140407
  Receipt Date: 20140407
  Transmission Date: 20141212
  Serious: Yes (Death)
  Sender: FDA-Public Use
  Company Number: BR-GLAXOSMITHKLINE-A1068149A

PATIENT
  Age: 94 Year
  Sex: Male

DRUGS (1)
  1. REVOLADE [Suspect]
     Indication: THROMBOCYTOPENIA
     Dosage: 50MG PER DAY
     Route: 048
     Dates: start: 201401

REACTIONS (2)
  - Pulmonary embolism [Fatal]
  - Death [Fatal]
